FAERS Safety Report 14010825 (Version 1)
Quarter: 2017Q3

REPORT INFORMATION
  Report Type: Spontaneous
  Country: US (occurrence: None)
  Receive Date: 20170925
  Receipt Date: 20170925
  Transmission Date: 20171128
  Serious: Yes (Life-Threatening, Hospitalization)
  Sender: FDA-Public Use
  Company Number: None

PATIENT
  Age: 70 Year
  Sex: Male
  Weight: 64 kg

DRUGS (1)
  1. DENOSUMAB [Suspect]
     Active Substance: DENOSUMAB
     Indication: BONE DISORDER
     Route: 058
     Dates: start: 20170807, end: 20170818

REACTIONS (10)
  - Hypocalcaemia [None]
  - Multiple organ dysfunction syndrome [None]
  - Peripheral swelling [None]
  - Metabolic disorder [None]
  - Blood bicarbonate decreased [None]
  - Anaemia [None]
  - Dyspnoea [None]
  - Electrocardiogram QT prolonged [None]
  - Swelling [None]
  - Renal failure [None]

NARRATIVE: CASE EVENT DATE: 20170818
